FAERS Safety Report 6962506-0 (Version None)
Quarter: 2010Q3

REPORT INFORMATION
  Report Type: 
  Country: None (occurrence: None)
  Receive Date: 20100831
  Receipt Date: 20100820
  Transmission Date: 20110219
  Serious: Yes (Life-Threatening, Hospitalization, Other)
  Sender: FDA-Public Use
  Company Number: TPA2010A04570

PATIENT
  Age: 67 Year
  Sex: Male
  Weight: 93.8 kg

DRUGS (8)
  1. DEXLANSOPRAZOLE [Suspect]
     Indication: BARRETT'S OESOPHAGUS
     Dosage: 60 MG, 1 IN 1 D, ORAL
     Route: 048
     Dates: start: 20091214, end: 20100311
  2. DEXLANSOPRAZOLE [Suspect]
     Indication: DYSPEPSIA
     Dosage: 60 MG, 1 IN 1 D, ORAL
     Route: 048
     Dates: start: 20091214, end: 20100311
  3. ZETIA [Concomitant]
  4. PRAVASTATIN [Concomitant]
  5. LISINOPRIL [Concomitant]
  6. LOPID [Concomitant]
  7. OMEGA 3 FATTY ACID (FISH OIL) [Concomitant]
  8. COQ10 (UBIDECARENONE) [Concomitant]

REACTIONS (13)
  - ABDOMINAL PAIN [None]
  - ANAEMIA MACROCYTIC [None]
  - BLOOD PRESSURE SYSTOLIC INCREASED [None]
  - BONE MARROW FAILURE [None]
  - CARDIAC STRESS TEST ABNORMAL [None]
  - DIVERTICULUM [None]
  - DYSPNOEA EXERTIONAL [None]
  - EXERCISE TOLERANCE DECREASED [None]
  - HAEMOLYTIC ANAEMIA [None]
  - HIATUS HERNIA [None]
  - IMMUNE SYSTEM DISORDER [None]
  - LYMPHOCYTOSIS [None]
  - MACROCYTOSIS [None]
